FAERS Safety Report 5506407-3 (Version None)
Quarter: 2007Q4

REPORT INFORMATION
  Report Type: 
  Country: None (occurrence: None)
  Receive Date: 20071101
  Receipt Date: 20071101
  Transmission Date: 20080405
  Serious: No
  Sender: FDA-Public Use
  Company Number: None

PATIENT
  Age: 66 Year
  Sex: Male
  Weight: 98.4306 kg

DRUGS (1)
  1. LIPITOR [Suspect]
     Indication: BLOOD CHOLESTEROL ABNORMAL
     Dosage: 1 TABLET DAILY PO
     Route: 048
     Dates: start: 20070506, end: 20071005

REACTIONS (6)
  - GAIT DISTURBANCE [None]
  - HEMIPARESIS [None]
  - HYPOAESTHESIA [None]
  - MUSCLE ATROPHY [None]
  - MUSCLE SPASMS [None]
  - MYOPATHY TOXIC [None]
